FAERS Safety Report 6354782-2 (Version None)
Quarter: 2009Q3

REPORT INFORMATION
  Report Type: 
  Country: None (occurrence: None)
  Receive Date: 20090914
  Receipt Date: 20090902
  Transmission Date: 20100115
  Serious: Yes (Hospitalization)
  Sender: FDA-Public Use
  Company Number: GB-PFIZER INC-2009262900

PATIENT
  Age: 85 Year

DRUGS (7)
  1. EXEMESTANE [Suspect]
     Indication: BREAST CANCER
     Dosage: 25 MG, 1X/DAY
     Route: 048
     Dates: start: 20090805, end: 20090819
  2. ALLOPURINOL [Concomitant]
     Indication: GOUT
     Dosage: 300 MG, 1X/DAY
     Route: 048
  3. BILBERRY [Concomitant]
     Dosage: 1 DF, 1X/DAY
  4. GARLIC [Concomitant]
     Dosage: 1 DF, 1X/DAY
     Route: 048
  5. LISINOPRIL [Concomitant]
     Indication: BLOOD PRESSURE INCREASED
     Dosage: 5 MG, 1X/DAY
     Route: 048
  6. LUTEIN [Concomitant]
     Dosage: 1 DF, 1X/DAY
  7. THYME [Concomitant]
     Dosage: 1 DF, 1X/DAY
     Route: 048

REACTIONS (3)
  - FLUSHING [None]
  - RASH ERYTHEMATOUS [None]
  - SYNCOPE [None]
